FAERS Safety Report 24376782 (Version 1)
Quarter: 2024Q3

REPORT INFORMATION
  Report Type: Spontaneous
  Country: CN (occurrence: CN)
  Receive Date: 20240930
  Receipt Date: 20240930
  Transmission Date: 20241017
  Serious: Yes (Other)
  Sender: DR REDDYS
  Company Number: CN-RDY-LIT/CHN/24/0014222

PATIENT
  Age: 59 Year
  Sex: Male
  Weight: 58 kg

DRUGS (7)
  1. PANTOPRAZOLE [Suspect]
     Active Substance: PANTOPRAZOLE
     Indication: Neoplasm malignant
  2. ROMIDEPSIN [Suspect]
     Active Substance: ROMIDEPSIN
     Indication: Neoplasm malignant
     Route: 041
  3. DOXORUBICIN [Suspect]
     Active Substance: DOXORUBICIN
     Indication: Neoplasm malignant
  4. CYCLOPHOSPHAMIDE [Suspect]
     Active Substance: CYCLOPHOSPHAMIDE
     Indication: Neoplasm malignant
  5. VINCRISTINE [Suspect]
     Active Substance: VINCRISTINE
     Indication: Neoplasm malignant
  6. ETOPOSIDE [Suspect]
     Active Substance: ETOPOSIDE
     Indication: Neoplasm malignant
  7. PREDNISONE [Suspect]
     Active Substance: PREDNISONE
     Indication: Neoplasm malignant

REACTIONS (2)
  - Atrial fibrillation [Unknown]
  - Product use in unapproved indication [Unknown]
